FAERS Safety Report 7347253-8 (Version None)
Quarter: 2011Q1

REPORT INFORMATION
  Report Type: 
  Country: None (occurrence: None)
  Receive Date: 20110303
  Receipt Date: 20110215
  Transmission Date: 20110831
  Serious: Yes (Other)
  Sender: FDA-Public Use
  Company Number: JPI-P-013962

PATIENT
  Age: 60 Year
  Sex: Female
  Weight: 56.6996 kg

DRUGS (10)
  1. RADIATION THERAPY [Suspect]
     Indication: BREAST CANCER STAGE III
     Dates: end: 20081201
  2. OTHER UNSPECIFIED CHEMOTHERAPY [Suspect]
     Indication: BREAST CANCER STAGE III
     Dates: end: 20080901
  3. MULTI-VITAMINS [Concomitant]
  4. EXEMESTANE [Suspect]
     Indication: BREAST CANCER STAGE III
     Dates: end: 20080901
  5. MAGNESIUM [Concomitant]
  6. LEVOTHYROXINE SODIUM [Concomitant]
  7. XYREM [Suspect]
     Indication: CATAPLEXY
     Dosage: 4.5 GM (2.25 GM, 2 IN 1 D), ORAL; 6 GM (3 GM, 2 IN 1 D), ORAL
     Route: 048
     Dates: start: 20070314
  8. XYREM [Suspect]
     Indication: CATAPLEXY
     Dosage: 4.5 GM (2.25 GM, 2 IN 1 D), ORAL; 6 GM (3 GM, 2 IN 1 D), ORAL
     Route: 048
     Dates: start: 20070215, end: 20070308
  9. XYREM [Suspect]
     Indication: CATAPLEXY
     Dosage: 4.5 GM (2.25 GM, 2 IN 1 D), ORAL; 6 GM (3 GM, 2 IN 1 D), ORAL
     Route: 048
     Dates: start: 20070309, end: 20070313
  10. METRONIDAZOLE [Concomitant]

REACTIONS (8)
  - EYELID OEDEMA [None]
  - OEDEMA PERIPHERAL [None]
  - DYSPHONIA [None]
  - CONFUSIONAL STATE [None]
  - GASTROOESOPHAGEAL REFLUX DISEASE [None]
  - BREAST CANCER STAGE III [None]
  - OSTEOPENIA [None]
  - DIARRHOEA [None]
